FAERS Safety Report 18814472 (Version 1)
Quarter: 2021Q1

REPORT INFORMATION
  Report Type: Spontaneous
  Country: GB (occurrence: GB)
  Receive Date: 20210201
  Receipt Date: 20210201
  Transmission Date: 20210419
  Serious: Yes (Hospitalization)
  Sender: FDA-Public Use
  Company Number: GB-ACCORD-216034

PATIENT
  Age: 79 Year
  Sex: Male

DRUGS (8)
  1. CLOPIDOGREL [Suspect]
     Active Substance: CLOPIDOGREL BISULFATE
     Indication: PRODUCT USED FOR UNKNOWN INDICATION
     Dosage: ONE TO BE TAKEN EACH DAY 28 TABLET ? TEATIME
  2. LORAZEPAM. [Concomitant]
     Active Substance: LORAZEPAM
     Dosage: 0.5MG AT 5PM DAILY  14 TABLETS
  3. SERTRALINE [Concomitant]
     Active Substance: SERTRALINE HYDROCHLORIDE
     Dosage: ONE TO BE TAKEN ONCE DAILY ? TEATIME
  4. ZOPICLONE [Concomitant]
     Active Substance: ZOPICLONE
     Dosage: ONE TO BE TAKEN AT NIGHT
  5. LACTULOSE. [Concomitant]
     Active Substance: LACTULOSE
     Dosage: 3.1?3.7G/5ML ORAL SOLUTION 10 TO 15 ML UPTO TWICE DAILY AS NEEDED
  6. LANSOPRAZOLE. [Concomitant]
     Active Substance: LANSOPRAZOLE
     Dosage: ONE TO BE TAKEN EACH MORNING
  7. ATENOLOL/ATENOLOL HYDROCHLORIDE [Concomitant]
     Active Substance: ATENOLOL HYDROCHLORIDE
     Dosage: ONE TO BE TAKEN EACH DAY 28 TABLET ? TEATIME
  8. SUDOCREM TEVA UK LTD [Concomitant]
     Dosage: APPLY THREE TIMES A DAY

REACTIONS (1)
  - Subdural haematoma [Recovered/Resolved]
